FAERS Safety Report 16621958 (Version 1)
Quarter: 2019Q3

REPORT INFORMATION
  Report Type: Spontaneous
  Country: US (occurrence: US)
  Receive Date: 20190611
  Receipt Date: 20190611
  Transmission Date: 20191004
  Serious: Yes (Hospitalization)
  Sender: FDA-Public Use
  Company Number: None

PATIENT
  Age: 52 Year
  Sex: Female

DRUGS (8)
  1. LISINOPRIL TAB [Concomitant]
  2. ONDANSETRON TAB [Concomitant]
  3. ZOLPIDEM TAB [Concomitant]
  4. HYDROCO/APAP TAB [Concomitant]
  5. NAPROXEN TAB [Concomitant]
  6. ENBREL [Suspect]
     Active Substance: ETANERCEPT
     Indication: PRODUCT USED FOR UNKNOWN INDICATION
     Dosage: ?          OTHER DOSE:1 SYR;?
     Route: 058
     Dates: start: 20190417
  7. FOLIC ACID TAB [Concomitant]
  8. OMEPRAZOLE CAP [Concomitant]
     Active Substance: OMEPRAZOLE SODIUM

REACTIONS (1)
  - Hospitalisation [None]

NARRATIVE: CASE EVENT DATE: 20190610
